FAERS Safety Report 8328268-X (Version None)
Quarter: 2012Q2

REPORT INFORMATION
  Report Type: 
  Country: None (occurrence: None)
  Receive Date: 20120502
  Receipt Date: 20120419
  Transmission Date: 20120825
  Serious: No
  Sender: FDA-Public Use
  Company Number: AU-ASTELLAS-2012JP003406

PATIENT
  Sex: Female

DRUGS (1)
  1. SOLIFENACIN SUCCINATE [Suspect]
     Indication: URGE INCONTINENCE
     Dosage: UNK
     Route: 065

REACTIONS (3)
  - ALOPECIA [None]
  - PHOBIA [None]
  - RASH [None]
